FAERS Safety Report 4358922-6 (Version None)
Quarter: 2004Q2

REPORT INFORMATION
  Report Type: 
  Country: None (occurrence: None)
  Receive Date: 20040517
  Receipt Date: 20040505
  Transmission Date: 20050107
  Serious: Yes (Hospitalization)
  Sender: FDA-Public Use
  Company Number: FR-BRISTOL-MYERS SQUIBB COMPANY-12583381

PATIENT
  Age: 71 Year
  Sex: Female

DRUGS (2)
  1. CETUXIMAB [Suspect]
     Indication: COLORECTAL CANCER
     Route: 041
     Dates: start: 20040504, end: 20040504
  2. IRINOTECAN [Suspect]
     Indication: COLORECTAL CANCER
     Dosage: THERAPY WAS NOT ADMINISTERED.
     Route: 042

REACTIONS (7)
  - BRONCHOSPASM [None]
  - ERYTHEMA [None]
  - HYPERSENSITIVITY [None]
  - HYPOTENSION [None]
  - HYPOTHERMIA [None]
  - SKIN REACTION [None]
  - SWELLING FACE [None]
